FAERS Safety Report 21121041 (Version 1)
Quarter: 2022Q3

REPORT INFORMATION
  Report Type: Spontaneous
  Country: US (occurrence: US)
  Receive Date: 20220722
  Receipt Date: 20220722
  Transmission Date: 20221027
  Serious: No
  Sender: FDA-Public Use
  Company Number: US-LUNDBECK-DKLU3050062

PATIENT
  Age: 9 Month
  Sex: Male

DRUGS (6)
  1. SABRIL [Suspect]
     Active Substance: VIGABATRIN
     Indication: Infantile spasms
     Route: 048
     Dates: start: 202206
  2. SABRIL [Suspect]
     Active Substance: VIGABATRIN
     Route: 048
  3. ACTHAR [Concomitant]
     Active Substance: CORTICOTROPIN
     Indication: Product used for unknown indication
     Route: 030
  4. ACTHAR [Concomitant]
     Active Substance: CORTICOTROPIN
     Route: 030
  5. ACTHAR [Concomitant]
     Active Substance: CORTICOTROPIN
     Route: 030
  6. ACTHAR [Concomitant]
     Active Substance: CORTICOTROPIN
     Route: 030

REACTIONS (1)
  - Tremor [Recovering/Resolving]
